FAERS Safety Report 8988003 (Version 1)
Quarter: 2012Q4

REPORT INFORMATION
  Report Type: Report from Study
  Country: US (occurrence: US)
  Receive Date: 20121227
  Receipt Date: 20121227
  Transmission Date: 20130627
  Serious: Yes (Hospitalization)
  Sender: FDA-Public Use
  Company Number: US-BAXTER-2012BAX028128

PATIENT
  Age: 59 Year
  Sex: Female
  Weight: 55.84 kg

DRUGS (6)
  1. CYTOXAN? (CYCLOPHOSPHAMIDE FOR INJECTION, USP) [Suspect]
     Indication: CLL
     Route: 042
     Dates: start: 20120203, end: 20120317
  2. CYTOXAN? (CYCLOPHOSPHAMIDE FOR INJECTION, USP) [Suspect]
     Route: 042
     Dates: start: 20120221, end: 20120317
  3. PENTOSTATIN [Suspect]
     Indication: CLL
     Route: 042
     Dates: start: 20120203, end: 20120317
  4. PENTOSTATIN [Suspect]
     Route: 042
     Dates: start: 20120221, end: 20120317
  5. RITUXAN [Suspect]
     Indication: CLL
     Route: 042
     Dates: start: 20120203, end: 20120317
  6. RITUXAN [Suspect]
     Route: 042
     Dates: start: 20120221, end: 20120317

REACTIONS (20)
  - Anaemia [Unknown]
  - Malnutrition [Unknown]
  - Pyrexia [Unknown]
  - Pericardial effusion [Unknown]
  - Generalised oedema [Unknown]
  - Hepatic lesion [Unknown]
  - Pyrexia [Unknown]
  - Inappropriate antidiuretic hormone secretion [Unknown]
  - Transaminases increased [Unknown]
  - Diarrhoea [Unknown]
  - Malnutrition [Unknown]
  - Iron deficiency anaemia [Unknown]
  - Enterococcal infection [Unknown]
  - Sinus tachycardia [Unknown]
  - Bacterial diarrhoea [Unknown]
  - Renal failure acute [Unknown]
  - Urinary tract infection [Unknown]
  - Deep vein thrombosis [Unknown]
  - Neutropenia [Unknown]
  - Renal injury [Unknown]
